FAERS Safety Report 9203837 (Version 1)
Quarter: 2013Q2

REPORT INFORMATION
  Report Type: Spontaneous
  Country: US (occurrence: US)
  Receive Date: 20130402
  Receipt Date: 20130402
  Transmission Date: 20140414
  Serious: No
  Sender: FDA-Public Use
  Company Number: US-009507513-1303USA012665

PATIENT
  Age: 21 Year
  Sex: Female
  Weight: 82.54 kg

DRUGS (1)
  1. NEXPLANON [Suspect]
     Dosage: 1 DF,
     Dates: start: 20130319

REACTIONS (3)
  - Pollakiuria [Unknown]
  - Unintended pregnancy [Unknown]
  - Breast pain [Unknown]
